FAERS Safety Report 22190347 (Version 1)
Quarter: 2023Q2

REPORT INFORMATION
  Report Type: Spontaneous
  Country: US (occurrence: US)
  Receive Date: 20230410
  Receipt Date: 20230410
  Transmission Date: 20230721
  Serious: No
  Sender: FDA-Public Use
  Company Number: US-SANOFI-01562130

PATIENT
  Age: 8 Year
  Sex: Male

DRUGS (1)
  1. DUPIXENT [Suspect]
     Active Substance: DUPILUMAB
     Indication: Asthma
     Dosage: 400 MG, 1X
     Dates: start: 20230326, end: 20230326

REACTIONS (8)
  - Abdominal pain upper [Unknown]
  - Pain in extremity [Unknown]
  - Pyrexia [Unknown]
  - Back pain [Unknown]
  - Vomiting [Unknown]
  - Nasal congestion [Unknown]
  - Myalgia [Unknown]
  - Arthralgia [Unknown]

NARRATIVE: CASE EVENT DATE: 20230326
